FAERS Safety Report 4262943-1 (Version None)
Quarter: 2004Q1

REPORT INFORMATION
  Report Type: 
  Country: None (occurrence: None)
  Receive Date: 20040102
  Receipt Date: 20040102
  Transmission Date: 20041129
  Serious: Yes (Hospitalization, Disabling)
  Sender: FDA-Public Use
  Company Number: None

PATIENT
  Sex: Female
  Weight: 52.1637 kg

DRUGS (3)
  1. LEVAQUIN [Suspect]
     Dosage: 1/DAY 2 WEEKS ORAL
     Route: 048
     Dates: start: 20031105, end: 20031119
  2. CELEBREX [Concomitant]
  3. ADVAIR DISKUS 250/50 [Concomitant]

REACTIONS (1)
  - TENDON RUPTURE [None]
